FAERS Safety Report 8263487-2 (Version None)
Quarter: 2012Q1

REPORT INFORMATION
  Report Type: 
  Country: None (occurrence: None)
  Receive Date: 20120327
  Receipt Date: 20090109
  Transmission Date: 20120608
  Serious: Yes (Other)
  Sender: FDA-Public Use
  Company Number: PHEH2009US00471

PATIENT
  Age: 80 Year
  Sex: Male

DRUGS (2)
  1. GLEEVEC [Suspect]
     Indication: CHRONIC MYELOID LEUKAEMIA
     Dosage: 400 MG, QD
     Dates: start: 20081211
  2. AZITHROMYCIN [Suspect]
     Indication: BRONCHITIS
     Dates: start: 20090102

REACTIONS (14)
  - BRONCHITIS [None]
  - PYREXIA [None]
  - THROAT TIGHTNESS [None]
  - EYE SWELLING [None]
  - GINGIVAL PAIN [None]
  - ORAL PAIN [None]
  - NASOPHARYNGITIS [None]
  - LIP EXFOLIATION [None]
  - COUGH [None]
  - CANDIDIASIS [None]
  - DYSPHAGIA [None]
  - OROPHARYNGEAL PAIN [None]
  - CHEILITIS [None]
  - RHINORRHOEA [None]
